FAERS Safety Report 16870018 (Version 1)
Quarter: 2019Q3

REPORT INFORMATION
  Report Type: Report from Study
  Country: US (occurrence: US)
  Receive Date: 20190930
  Receipt Date: 20190930
  Transmission Date: 20191005
  Serious: Yes (Life-Threatening, Hospitalization)
  Sender: FDA-Public Use
  Company Number: US-BAYER-2019-176927

PATIENT
  Age: 61 Year
  Sex: Male

DRUGS (3)
  1. COPANLISIB. [Suspect]
     Active Substance: COPANLISIB
     Indication: NEOPLASM
     Dosage: CYCLE 28 DAYS: 60 MG OVER 60 MINUTES ON DAYS 1,8 AND 15
     Route: 042
     Dates: start: 20190522
  2. COPANLISIB. [Suspect]
     Active Substance: COPANLISIB
     Indication: NEOPLASM
     Dosage: CYCLE 28 DAYS: 60 MG OVER 60 MINUTES ON DAYS 1,8 AND 15
     Route: 042
     Dates: start: 20190619
  3. XARELTO [Concomitant]
     Active Substance: RIVAROXABAN

REACTIONS (3)
  - Hypertension [Recovered/Resolved]
  - Brain oedema [None]
  - Headache [None]

NARRATIVE: CASE EVENT DATE: 20190522
